FAERS Safety Report 4322042-7 (Version None)
Quarter: 2004Q1

REPORT INFORMATION
  Report Type: 
  Country: None (occurrence: None)
  Receive Date: 20040319
  Receipt Date: 20040315
  Transmission Date: 20041129
  Serious: Yes (Hospitalization, Other)
  Sender: FDA-Public Use
  Company Number: HQWYE943830DEC03

PATIENT
  Age: 57 Year
  Sex: Male
  Weight: 69.01 kg

DRUGS (8)
  1. ZOSYN [Suspect]
     Indication: ABDOMINAL INFECTION
     Dosage: 13.5 GRAMS OVER 24 HOURS, INTRAVENOUS DRIP
     Route: 041
     Dates: start: 20031219, end: 20031222
  2. ZOSYN [Suspect]
     Indication: SMALL INTESTINAL PERFORATION
     Dosage: 13.5 GRAMS OVER 24 HOURS, INTRAVENOUS DRIP
     Route: 041
     Dates: start: 20031219, end: 20031222
  3. SIMVASTATIN [Concomitant]
  4. METOPROLOL (METOPROLOL) [Concomitant]
  5. RANITIDINE [Concomitant]
  6. CLOPIDOGREL (CLOPIDOGREL) [Concomitant]
  7. LORAZEPAM [Concomitant]
  8. DEMEROL [Concomitant]

REACTIONS (5)
  - CONFUSIONAL STATE [None]
  - NAUSEA [None]
  - OXYGEN SATURATION DECREASED [None]
  - TACHYCARDIA [None]
  - WHITE BLOOD CELL COUNT INCREASED [None]
